FAERS Safety Report 23406849 (Version 2)
Quarter: 2024Q1

REPORT INFORMATION
  Report Type: Spontaneous
  Country: MY (occurrence: MY)
  Receive Date: 20240116
  Receipt Date: 20240118
  Transmission Date: 20240410
  Serious: Yes (Death, Life-Threatening, Hospitalization, Other)
  Sender: FDA-Public Use
  Company Number: MY-MLMSERVICE-20240103-4755541-1

PATIENT
  Age: 40 Year
  Sex: Female

DRUGS (7)
  1. METHOTREXATE SODIUM [Suspect]
     Active Substance: METHOTREXATE SODIUM
     Indication: Prophylaxis
     Dosage: UNK, CYCLIC (MACOP-B), ONE CYCLE
  2. METHOTREXATE SODIUM [Suspect]
     Active Substance: METHOTREXATE SODIUM
     Indication: Hepatosplenic T-cell lymphoma
  3. DOXORUBICIN HYDROCHLORIDE [Suspect]
     Active Substance: DOXORUBICIN HYDROCHLORIDE
     Indication: Hepatosplenic T-cell lymphoma
     Dosage: UNK, CYCLIC (MACOP-B), ONE CYCLE
  4. BLEOMYCIN SULFATE [Suspect]
     Active Substance: BLEOMYCIN SULFATE
     Indication: Hepatosplenic T-cell lymphoma
     Dosage: UNK, CYCLIC (MACOP-B), ONE CYCLE
  5. VINCRISTINE SULFATE [Suspect]
     Active Substance: VINCRISTINE SULFATE
     Indication: Hepatosplenic T-cell lymphoma
     Dosage: UNK, CYCLIC (MACOP-B), ONE CYCLE
  6. CYCLOPHOSPHAMIDE [Suspect]
     Active Substance: CYCLOPHOSPHAMIDE
     Indication: Hepatosplenic T-cell lymphoma
     Dosage: UNK, CYCLIC (MACOP-B), ONE CYCLE
  7. PREDNISOLONE [Suspect]
     Active Substance: PREDNISOLONE
     Indication: Hepatosplenic T-cell lymphoma
     Dosage: UNK, CYCLIC (MACOP-B), ONE CYCLE

REACTIONS (4)
  - Pseudomonas infection [Fatal]
  - Staphylococcal bacteraemia [Fatal]
  - Neutropenic sepsis [Fatal]
  - Off label use [Unknown]
